FAERS Safety Report 13373579 (Version 1)
Quarter: 2017Q1

REPORT INFORMATION
  Report Type: Spontaneous
  Country: AT (occurrence: AT)
  Receive Date: 20170327
  Receipt Date: 20170327
  Transmission Date: 20170429
  Serious: Yes (Other)
  Sender: FDA-Public Use
  Company Number: AT-PFIZER INC-2012117382

PATIENT
  Age: 59 Year
  Sex: Male

DRUGS (15)
  1. TEMESTA [Suspect]
     Active Substance: LORAZEPAM
     Dosage: 1.25 MG, 2X/DAY
     Route: 048
     Dates: start: 20111229, end: 20111229
  2. TEMESTA [Suspect]
     Active Substance: LORAZEPAM
     Dosage: 2.5 MG, 2X/DAY
     Route: 048
     Dates: start: 20120110, end: 20120110
  3. TEMESTA [Suspect]
     Active Substance: LORAZEPAM
     Dosage: 2.5 MG - 1.25 MG - 2.5 MG
     Route: 048
     Dates: start: 20120109, end: 20120117
  4. TEMESTA [Suspect]
     Active Substance: LORAZEPAM
     Dosage: 1.25MG - 0 - 2.5MG
     Dates: start: 20120111, end: 20120111
  5. ZYPREXA [Suspect]
     Active Substance: OLANZAPINE
     Dosage: 15 MG, 1X/DAY
     Dates: start: 20111227, end: 20111227
  6. SEROQUEL [Concomitant]
     Active Substance: QUETIAPINE FUMARATE
     Dosage: 200 MG, 1X/DAY
     Dates: start: 20111227, end: 20111227
  7. SEROQUEL [Concomitant]
     Active Substance: QUETIAPINE FUMARATE
     Dosage: 100 MG, 1X/DAY
     Route: 048
     Dates: start: 20111230, end: 20111230
  8. TEMESTA [Suspect]
     Active Substance: LORAZEPAM
     Dosage: 1.25 MG - 2.5 MG - 2.5 MG
     Route: 048
     Dates: start: 20111230, end: 20111230
  9. TEMESTA [Suspect]
     Active Substance: LORAZEPAM
     Dosage: 1.25 MG, 1X/DAY
     Dates: start: 20120118
  10. MIRTAZAPINE. [Concomitant]
     Active Substance: MIRTAZAPINE
     Dosage: 45 MG, 1X/DAY
     Dates: start: 20111227
  11. TEMESTA [Suspect]
     Active Substance: LORAZEPAM
     Dosage: 2.5 MG, 3X/DAY
     Route: 048
     Dates: start: 20111231, end: 20120108
  12. TEMESTA [Suspect]
     Active Substance: LORAZEPAM
     Dosage: 1.25 MG, 2X/DAY
     Dates: start: 20120112, end: 20120117
  13. TEMESTA [Suspect]
     Active Substance: LORAZEPAM
     Dosage: 1.25 MG, 3X/DAY
     Route: 048
     Dates: start: 20111227, end: 20111228
  14. SEROQUEL [Concomitant]
     Active Substance: QUETIAPINE FUMARATE
     Dosage: 350 MG, 1X/DAY
     Route: 048
     Dates: start: 20111228, end: 20111228
  15. SEROQUEL [Concomitant]
     Active Substance: QUETIAPINE FUMARATE
     Dosage: 400 MG, 1X/DAY
     Route: 048
     Dates: start: 20111229, end: 20111229

REACTIONS (1)
  - Dyskinesia [Recovered/Resolved]

NARRATIVE: CASE EVENT DATE: 20111227
